FAERS Safety Report 9042524 (Version 1)
Quarter: 2013Q1

REPORT INFORMATION
  Report Type: Report from Study
  Country: US (occurrence: US)
  Receive Date: 20130129
  Receipt Date: 20130129
  Transmission Date: 20140127
  Serious: No
  Sender: FDA-Public Use
  Company Number: US-ABBOTT-12P-163-0908669-00

PATIENT
  Age: 62 Year
  Sex: Female

DRUGS (9)
  1. HUMIRA 40 MG/0.8 ML PEN [Suspect]
     Indication: CROHN^S DISEASE
     Dates: start: 20111129
  2. NEXIUM [Concomitant]
     Indication: GASTRIC DISORDER
  3. MOBIC [Concomitant]
     Indication: CARDIAC DISORDER
  4. COREG [Concomitant]
     Indication: CARDIAC DISORDER
  5. METFORMIN [Concomitant]
     Indication: DIABETES MELLITUS
  6. AMARYL [Concomitant]
     Indication: DIABETES MELLITUS
  7. QUINAPRIL [Concomitant]
     Indication: CARDIAC DISORDER
  8. ESTRADIOL [Concomitant]
     Indication: HORMONE REPLACEMENT THERAPY
  9. ASPIRIN [Concomitant]
     Indication: CARDIAC DISORDER
     Dosage: LOW DOSE; ONCE A DAY

REACTIONS (2)
  - Hypoaesthesia [Not Recovered/Not Resolved]
  - Muscular weakness [Not Recovered/Not Resolved]
